FAERS Safety Report 7985544-8 (Version None)
Quarter: 2011Q4

REPORT INFORMATION
  Report Type: 
  Country: None (occurrence: None)
  Receive Date: 20111214
  Receipt Date: 20111209
  Transmission Date: 20120403
  Serious: Yes (Life-Threatening, Hospitalization, Other)
  Sender: FDA-Public Use
  Company Number: 2011SP046619

PATIENT
  Age: 72 Year
  Sex: Male
  Weight: 65 kg

DRUGS (8)
  1. ARANESP [Concomitant]
  2. VIRAFERONPEG [Suspect]
     Indication: HEPATITIS C
     Dosage: 0.49 ML;QW;SC
     Route: 058
     Dates: start: 20110503, end: 20110927
  3. REBETOL [Suspect]
     Indication: HEPATITIS C
     Dosage: 600 MG;BID;PO
     Route: 048
     Dates: start: 20110503, end: 20110927
  4. ACETAMINOPHEN [Concomitant]
  5. EPO [Concomitant]
  6. ARANESP [Concomitant]
  7. ARANESP [Concomitant]
  8. SPASFON [Concomitant]

REACTIONS (3)
  - PYELONEPHRITIS [None]
  - MYELODYSPLASTIC SYNDROME [None]
  - SEPTIC SHOCK [None]
